FAERS Safety Report 12903552 (Version 1)
Quarter: 2016Q4

REPORT INFORMATION
  Report Type: Spontaneous
  Country: US (occurrence: US)
  Receive Date: 20161102
  Receipt Date: 20161102
  Transmission Date: 20170207
  Serious: Yes (Hospitalization, Other)
  Sender: FDA-Public Use
  Company Number: US-AMGEN-USASP2016148521

PATIENT
  Age: 68 Year
  Sex: Male
  Weight: 98.41 kg

DRUGS (14)
  1. NPLATE [Suspect]
     Active Substance: ROMIPLOSTIM
     Indication: IMMUNE THROMBOCYTOPENIC PURPURA
     Dosage: 50 MUG, UNK
     Route: 065
     Dates: start: 201404
  2. NPLATE [Suspect]
     Active Substance: ROMIPLOSTIM
     Dosage: 50 MUG, UNK
     Route: 065
     Dates: start: 20160803
  3. NPLATE [Suspect]
     Active Substance: ROMIPLOSTIM
     Dosage: 225 MUG, UNK
     Route: 065
     Dates: start: 201603
  4. DEXAMETHASONE. [Concomitant]
     Active Substance: DEXAMETHASONE
     Indication: DIABETES MELLITUS
  5. INSULIN [Concomitant]
     Active Substance: INSULIN NOS
     Indication: DIABETES MELLITUS
  6. NPLATE [Suspect]
     Active Substance: ROMIPLOSTIM
     Dosage: 50 MUG, UNK
     Route: 065
     Dates: start: 20160921
  7. NPLATE [Suspect]
     Active Substance: ROMIPLOSTIM
     Dosage: 50 MUG, UNK
     Route: 065
     Dates: start: 20161020
  8. LISINOPRIL. [Concomitant]
     Active Substance: LISINOPRIL
     Dosage: 20 MG, QD
  9. NPLATE [Suspect]
     Active Substance: ROMIPLOSTIM
     Dosage: 100 MUG, UNK
     Route: 065
     Dates: start: 20161027
  10. NPLATE [Suspect]
     Active Substance: ROMIPLOSTIM
     Dosage: 50 MUG, UNK
     Route: 065
     Dates: start: 20160812
  11. SYNTHROID [Concomitant]
     Active Substance: LEVOTHYROXINE SODIUM
     Dosage: 200 MUG, QD
  12. PEPCID [Concomitant]
     Active Substance: FAMOTIDINE
     Dosage: 20 MG, QD
  13. NPLATE [Suspect]
     Active Substance: ROMIPLOSTIM
     Dosage: 150 MUG, UNK
     Route: 065
     Dates: start: 201605
  14. NPLATE [Suspect]
     Active Substance: ROMIPLOSTIM
     Dosage: 50 MUG, UNK
     Route: 065
     Dates: start: 20161007

REACTIONS (7)
  - Drug hypersensitivity [Unknown]
  - Blood blister [Unknown]
  - Headache [Unknown]
  - Haemorrhage intracranial [Unknown]
  - Drug effect decreased [Not Recovered/Not Resolved]
  - Chest pain [Unknown]
  - Platelet count decreased [Recovered/Resolved]

NARRATIVE: CASE EVENT DATE: 201404
